FAERS Safety Report 19374203 (Version 1)
Quarter: 2021Q2

REPORT INFORMATION
  Report Type: Spontaneous
  Country: US (occurrence: US)
  Receive Date: 20210603
  Receipt Date: 20210603
  Transmission Date: 20210717
  Serious: Yes (Hospitalization)
  Sender: FDA-Public Use
  Company Number: US-SA-2021SA185320

PATIENT
  Age: 56 Year
  Sex: Female

DRUGS (16)
  1. MECLIZINE [Concomitant]
     Active Substance: MECLIZINE HYDROCHLORIDE
  2. DIPHENHYDRAMINE HYDROCHLORIDE;RESORCINOL [Concomitant]
     Dosage: 60 MG
  3. NEXIUM I.V. [Concomitant]
     Active Substance: ESOMEPRAZOLE SODIUM
  4. ARMODAFINIL. [Concomitant]
     Active Substance: ARMODAFINIL
  5. BREO ELLIPTA [Concomitant]
     Active Substance: FLUTICASONE FUROATE\VILANTEROL TRIFENATATE
  6. CLARITIN [CLARITHROMYCIN] [Concomitant]
     Active Substance: CLARITHROMYCIN
  7. CYMBALTA [Concomitant]
     Active Substance: DULOXETINE HYDROCHLORIDE
     Dosage: 60 MG
  8. GABAPENTIN. [Concomitant]
     Active Substance: GABAPENTIN
  9. GABAPENTIN. [Concomitant]
     Active Substance: GABAPENTIN
  10. DULOXETINE. [Concomitant]
     Active Substance: DULOXETINE
     Dosage: 60 MG
  11. ESOMEPRAZOLE MAGNESIUM. [Concomitant]
     Active Substance: ESOMEPRAZOLE MAGNESIUM
  12. MIRALAX [Concomitant]
     Active Substance: POLYETHYLENE GLYCOL 3350
     Dosage: 10 MG
  13. DIPHENHYDRAMINE. [Concomitant]
     Active Substance: DIPHENHYDRAMINE
  14. SINGULAIR [Concomitant]
     Active Substance: MONTELUKAST SODIUM
  15. DUPIXENT [Suspect]
     Active Substance: DUPILUMAB
     Indication: DERMATITIS ATOPIC
     Dosage: 300 MG, QOW
     Route: 058
     Dates: start: 20200827
  16. MONTELUKAST [Concomitant]
     Active Substance: MONTELUKAST SODIUM

REACTIONS (1)
  - Hernia [Recovered/Resolved]

NARRATIVE: CASE EVENT DATE: 2020
